FAERS Safety Report 19472533 (Version 1)
Quarter: 2021Q2

REPORT INFORMATION
  Report Type: Spontaneous
  Country: ES (occurrence: ES)
  Receive Date: 20210629
  Receipt Date: 20210629
  Transmission Date: 20210717
  Serious: Yes (Other)
  Sender: FDA-Public Use
  Company Number: ES-TEVA-2021-ES-1926784

PATIENT
  Age: 44 Year
  Sex: Female

DRUGS (9)
  1. OMEPRAZOL RATIO 40 MG CAPSULAS DURAS GASTRORRESISTENTES [Suspect]
     Active Substance: OMEPRAZOLE
     Indication: DYSPEPSIA
     Dosage: 40 MG
     Route: 048
     Dates: start: 20141202
  2. METFORMINA CINFA 850 MG COMPRIMIDOS RECUBIERTOS CON PELICULA EFG [Concomitant]
  3. METRONIDAZOL NORMON 250 MG COMPRIMIDOS EFG, 21 COMPRIMIDOS [Suspect]
     Active Substance: METRONIDAZOLE
     Indication: HELICOBACTER GASTRITIS
     Dosage: 500 MG
     Route: 048
     Dates: start: 20210602
  4. VIPIDIA 25 MG COMPRIMIDOS RECUBIERTOS CON PELICULA [Concomitant]
  5. TARDYFERON 80 MG COMPRIMIDOS RECUBIERTOS [Concomitant]
  6. LORAZEPAM NORMON 1 MG COMPRIMIDOS EFG [Concomitant]
  7. AMOXICILINA CINFA 1000 MG COMPRIMIDOS EFG [Concomitant]
  8. CLARITROMICINA MYLAN 500 MG COMPRIMIDOS RECUBIERTOS CON PELICULA EFG [Concomitant]
  9. DIAZEPAM NORMON 5 MG COMPRIMIDOS [Concomitant]

REACTIONS (3)
  - Gingival swelling [Unknown]
  - Stomatitis [Unknown]
  - Genital tract inflammation [Unknown]

NARRATIVE: CASE EVENT DATE: 20210610
